FAERS Safety Report 12765963 (Version 1)
Quarter: 2016Q3

REPORT INFORMATION
  Report Type: Spontaneous
  Country: JP (occurrence: JP)
  Receive Date: 20160921
  Receipt Date: 20160921
  Transmission Date: 20161109
  Serious: Yes (Other)
  Sender: FDA-Public Use
  Company Number: JP-GLAXOSMITHKLINE-JP2016JPN034934

PATIENT
  Age: 6 Decade
  Sex: Female

DRUGS (1)
  1. RELENZA [Suspect]
     Active Substance: ZANAMIVIR
     Indication: PRODUCT USED FOR UNKNOWN INDICATION
     Dosage: UNK
     Route: 055

REACTIONS (1)
  - Hypothermia [Not Recovered/Not Resolved]
